FAERS Safety Report 9129734 (Version 1)
Quarter: 2013Q1

REPORT INFORMATION
  Report Type: Spontaneous
  Country: US (occurrence: US)
  Receive Date: 20130125
  Receipt Date: 20130125
  Transmission Date: 20140127
  Serious: Yes (Death, Hospitalization, Other)
  Sender: FDA-Public Use
  Company Number: CHPA2013US001552

PATIENT
  Age: 68 Year
  Sex: Male

DRUGS (2)
  1. MYOFLEX ANALGESIC CREME [Suspect]
     Indication: ARTHRALGIA
     Dosage: UNK, UNK
     Route: 061
  2. ENBREL [Concomitant]
     Indication: RHEUMATOID ARTHRITIS

REACTIONS (9)
  - Myocardial infarction [Fatal]
  - Vomiting [Recovered/Resolved]
  - Tongue disorder [Recovered/Resolved]
  - Cough [Recovered/Resolved]
  - Bronchitis [Recovered/Resolved]
  - Bacterial infection [None]
  - Feeling abnormal [Not Recovered/Not Resolved]
  - Laziness [Not Recovered/Not Resolved]
  - Oesophageal food impaction [Unknown]
